FAERS Safety Report 17521322 (Version 1)
Quarter: 2020Q1

REPORT INFORMATION
  Report Type: Spontaneous
  Country: US (occurrence: US)
  Receive Date: 20200310
  Receipt Date: 20200310
  Transmission Date: 20200409
  Serious: Yes (Hospitalization)
  Sender: FDA-Public Use
  Company Number: None

PATIENT
  Sex: Male

DRUGS (10)
  1. LASIX [Concomitant]
     Active Substance: FUROSEMIDE
  2. MYCOPHENOLIC [Suspect]
     Active Substance: MYCOPHENOLIC ACID
     Indication: RENAL TRANSPLANT
     Route: 048
     Dates: start: 20160919
  3. VITAMIN D [Concomitant]
     Active Substance: VITAMIN D NOS
  4. MYCOPEHNOLIC [Suspect]
     Active Substance: MYCOPHENOLIC ACID
     Indication: RENAL TRANSPLANT
     Route: 048
     Dates: start: 20160919
  5. LOSARTAN. [Concomitant]
     Active Substance: LOSARTAN
  6. LEVOTHYROXIN [Concomitant]
     Active Substance: LEVOTHYROXINE
  7. ATORVASTATIN [Concomitant]
     Active Substance: ATORVASTATIN
  8. FISH OIL [Concomitant]
     Active Substance: FISH OIL
  9. PREDNISONE. [Concomitant]
     Active Substance: PREDNISONE
  10. ANCEF [Suspect]
     Active Substance: CEFAZOLIN SODIUM

REACTIONS (1)
  - Drug hypersensitivity [None]
